FAERS Safety Report 7075513-7 (Version None)
Quarter: 2010Q4

REPORT INFORMATION
  Report Type: 
  Country: None (occurrence: None)
  Receive Date: 20101030
  Receipt Date: 20101004
  Transmission Date: 20110411
  Serious: No
  Sender: FDA-Public Use
  Company Number: US-WYE-H17978710

PATIENT
  Sex: Male
  Weight: 90.8 kg

DRUGS (5)
  1. PRISTIQ [Suspect]
     Indication: DEPRESSION
     Dates: start: 20100101
  2. WELLBUTRIN [Concomitant]
  3. SIMVASTATIN [Concomitant]
  4. AMLODIPINE BESYLATE AND BENAZEPRIL HCL [Concomitant]
  5. OMEPRAZOLE [Concomitant]

REACTIONS (1)
  - MEDICATION RESIDUE [None]
